FAERS Safety Report 7982274-3 (Version None)
Quarter: 2011Q4

REPORT INFORMATION
  Report Type: 
  Country: None (occurrence: None)
  Receive Date: 20111215
  Receipt Date: 20111205
  Transmission Date: 20120403
  Serious: Yes (Other)
  Sender: FDA-Public Use
  Company Number: US-ABBOTT-11P-163-0869105-00

PATIENT
  Sex: Female
  Weight: 93.42 kg

DRUGS (3)
  1. ATAZANAVIR [Concomitant]
     Indication: HIV INFECTION
     Dosage: (BLINDED)
     Route: 048
     Dates: start: 20101020
  2. EMTRICITABINE/TENOFOVIR DISOPROXIL FUMARATE [Concomitant]
     Indication: HIV INFECTION
     Dosage: (BLINDED)
     Dates: start: 20111019
  3. RITONAVIR SOFT GELATIN CAPSULES (BLINDED) [Suspect]
     Indication: HIV INFECTION
     Route: 048
     Dates: start: 20101020

REACTIONS (1)
  - ABORTION SPONTANEOUS [None]
